FAERS Safety Report 11477299 (Version 1)
Quarter: 2015Q3

REPORT INFORMATION
  Report Type: Report from Study
  Country: DE (occurrence: DE)
  Receive Date: 20150909
  Receipt Date: 20150909
  Transmission Date: 20151125
  Serious: Yes (Hospitalization)
  Sender: FDA-Public Use
  Company Number: DE-PFIZER INC-2015291136

PATIENT
  Age: 66 Year
  Sex: Male
  Weight: 94 kg

DRUGS (5)
  1. TORISEL [Suspect]
     Active Substance: TEMSIROLIMUS
     Dosage: 25 MG/INFUSION
     Dates: start: 20150313
  2. RITUXIMAB [Suspect]
     Active Substance: RITUXIMAB
     Dosage: 750 MG, UNK
     Dates: start: 20150314
  3. CYTARABINE. [Suspect]
     Active Substance: CYTARABINE
     Dosage: 8000 MG, UNK
     Dates: start: 20150316
  4. DEXAMETHASONE. [Suspect]
     Active Substance: DEXAMETHASONE
     Dosage: 40 MG, UNK
     Dates: start: 20150316
  5. CISPLATIN. [Suspect]
     Active Substance: CISPLATIN
     Dosage: 200 MG, UNK
     Dates: start: 20150315

REACTIONS (1)
  - Tumour lysis syndrome [Recovered/Resolved]

NARRATIVE: CASE EVENT DATE: 20150318
